FAERS Safety Report 23504219 (Version 2)
Quarter: 2024Q1

REPORT INFORMATION
  Report Type: Report from Study
  Country: US (occurrence: US)
  Receive Date: 20240209
  Receipt Date: 20240311
  Transmission Date: 20240410
  Serious: No
  Sender: FDA-Public Use
  Company Number: US-GSKCCFUS-Case-01926442_AE-107168

PATIENT
  Age: 57 Year
  Sex: Female

DRUGS (1)
  1. DOSTARLIMAB [Suspect]
     Active Substance: DOSTARLIMAB
     Indication: Neoplasm malignant
     Dosage: UNK

REACTIONS (2)
  - Rash [Not Recovered/Not Resolved]
  - Pruritus [Not Recovered/Not Resolved]

NARRATIVE: CASE EVENT DATE: 20240101
